FAERS Safety Report 7053087-4 (Version None)
Quarter: 2010Q4

REPORT INFORMATION
  Report Type: 
  Country: None (occurrence: None)
  Receive Date: 20101020
  Receipt Date: 20101004
  Transmission Date: 20110411
  Serious: Yes (Hospitalization)
  Sender: FDA-Public Use
  Company Number: US-BAYER-200939110NA

PATIENT
  Age: 17 Year
  Sex: Female
  Weight: 70 kg

DRUGS (31)
  1. YAZ [Suspect]
     Indication: CONTRACEPTION
     Dates: start: 20080401
  2. ALBUTEROL [Concomitant]
     Indication: ASTHMA
     Dates: start: 20030101
  3. ACETAMINOPHEN [Concomitant]
  4. ALEVE (CAPLET) [Concomitant]
  5. AZITHROMYCIN [Concomitant]
     Dates: start: 20071101
  6. AZITHROMYCIN [Concomitant]
     Dates: start: 20080101
  7. AZITHROMYCIN [Concomitant]
  8. AZITHROMYCIN [Concomitant]
     Dates: start: 20081101
  9. HYDROCODONE [Concomitant]
     Dates: start: 20080901, end: 20081001
  10. PERMETHRIN 5% [Concomitant]
     Dosage: 5%; HAIRLINE TO TOES
     Route: 061
     Dates: start: 20080928
  11. ACETAMINOPHEN [Concomitant]
     Dates: start: 20081001, end: 20090401
  12. CIPROFLOXACIN [Concomitant]
     Dosage: TOTAL DAILY DOSE: 1000 MG
     Route: 048
     Dates: start: 20081113
  13. METRONIDAZOLE [Concomitant]
     Dates: start: 20090301
  14. TUSSIONEX [Concomitant]
     Dosage: 1 TSP Q12HR
     Route: 048
     Dates: start: 20081101
  15. TRANSDERM SCOP [Concomitant]
     Dates: start: 20090701
  16. CEPHALEXIN [Concomitant]
     Dates: start: 20090701
  17. TRAMADOL [Concomitant]
     Dates: start: 20090801
  18. CEFUROXIME [Concomitant]
     Dosage: TOTAL DAILY DOSE: 500 MG
     Dates: start: 20081201
  19. FENTANYL [Concomitant]
     Indication: PAIN
     Route: 042
  20. MORPHINE SULFATE [Concomitant]
     Route: 042
  21. MEPERIDINE HCL [Concomitant]
     Indication: CHILLS
  22. KETOROLAC TROMETHAMINE [Concomitant]
     Route: 042
  23. ONDANSETRON HYDROCHLORIDE [Concomitant]
     Indication: NAUSEA
     Route: 048
  24. ONDANSETRON HYDROCHLORIDE [Concomitant]
     Route: 055
  25. HYDROMORPHONE HCL [Concomitant]
     Indication: PAIN
     Route: 042
  26. DIMENHYDRINATE [Concomitant]
     Indication: PAIN
     Route: 042
  27. HYDROCODE [Concomitant]
  28. OXYCODONE HYDROCHLORIDE [Concomitant]
  29. PROPOXYPHENE HCL [Concomitant]
  30. ZOLPIDEM [Concomitant]
     Route: 048
  31. HYDROCODONE BITARTRATE + ACETAMINOPHEN [Concomitant]
     Indication: PAIN
     Dosage: 7.5MG/500MG: Q4-6HRS

REACTIONS (4)
  - ABDOMINAL PAIN [None]
  - CHOLECYSTITIS CHRONIC [None]
  - NAUSEA [None]
  - VOMITING [None]
